FAERS Safety Report 4673336-7 (Version None)
Quarter: 2005Q2

REPORT INFORMATION
  Report Type: 
  Country: None (occurrence: None)
  Receive Date: 20050524
  Receipt Date: 20050524
  Transmission Date: 20051028
  Serious: Yes (Life-Threatening, Hospitalization)
  Sender: FDA-Public Use
  Company Number: None

PATIENT
  Age: 67 Year
  Sex: Male
  Weight: 102.0593 kg

DRUGS (14)
  1. SPIRONOLACTONE [Suspect]
     Indication: CARDIAC FAILURE CONGESTIVE
     Dosage: 50 MG QD PO
     Route: 048
     Dates: start: 20041008
  2. POTASSIUM CHLORIDE [Suspect]
     Indication: HYPERTENSION
     Dosage: 20 MEQ PO BID
     Route: 048
     Dates: start: 20041109
  3. ENALAPRIL MALEATE [Suspect]
     Dosage: 5 MG PO BID
     Route: 048
     Dates: start: 20041008
  4. ALBUTEROL [Concomitant]
  5. ATROVENT [Concomitant]
  6. DIGOXIN [Concomitant]
  7. METOPROLOL TARTRATE [Concomitant]
  8. HYDROCHLOROTHIAZIDE [Concomitant]
  9. FUROSEMIDE [Concomitant]
  10. TERAZOSIN [Concomitant]
  11. WARFARIN [Concomitant]
  12. MAGNESIUM OXIDE [Concomitant]
  13. OMEPRAZOLE [Concomitant]
  14. CHOLESTYRAMINE [Concomitant]

REACTIONS (13)
  - ABDOMINAL PAIN [None]
  - BLOOD CREATININE INCREASED [None]
  - BLOOD PRESSURE DECREASED [None]
  - DIARRHOEA [None]
  - DIZZINESS [None]
  - HAEMODIALYSIS [None]
  - HEART RATE DECREASED [None]
  - HYPERKALAEMIA [None]
  - NODAL RHYTHM [None]
  - POST PROCEDURAL COMPLICATION [None]
  - RENAL FAILURE ACUTE [None]
  - VENTRICULAR EXTRASYSTOLES [None]
  - VISUAL DISTURBANCE [None]
